FAERS Safety Report 9743697 (Version 2)
Quarter: 2013Q4

REPORT INFORMATION
  Report Type: Spontaneous
  Country: US (occurrence: US)
  Receive Date: 20131210
  Receipt Date: 20131212
  Transmission Date: 20140711
  Serious: Yes (Other)
  Sender: FDA-Public Use
  Company Number: US-TEVA-380823USA

PATIENT
  Age: 31 Year
  Sex: Female

DRUGS (1)
  1. PARAGARD 380A [Suspect]
     Indication: CONTRACEPTION
     Route: 015

REACTIONS (5)
  - Embedded device [Unknown]
  - Complication of device removal [Unknown]
  - Fungal infection [Unknown]
  - Abdominal pain upper [Unknown]
  - Uterine pain [Unknown]
